FAERS Safety Report 23860448 (Version 2)
Quarter: 2024Q3

REPORT INFORMATION
  Report Type: Report from Study
  Country: US (occurrence: US)
  Receive Date: 20240516
  Receipt Date: 20240704
  Transmission Date: 20241016
  Serious: Yes (Hospitalization)
  Sender: ABBVIE
  Company Number: US-ABBVIE-5755762

PATIENT
  Age: 51 Year
  Sex: Male
  Weight: 108.86 kg

DRUGS (3)
  1. HUMIRA [Suspect]
     Active Substance: ADALIMUMAB
     Indication: Psoriatic arthropathy
     Dosage: FORM STRENGTH: 40  MG,
     Route: 058
     Dates: start: 2018, end: 202404
  2. HUMIRA [Suspect]
     Active Substance: ADALIMUMAB
     Indication: Psoriasis
     Route: 058
  3. GENTAMICIN [Concomitant]
     Active Substance: GENTAMICIN
     Indication: Psoriasis

REACTIONS (9)
  - Skin burning sensation [Recovering/Resolving]
  - Gait inability [Recovered/Resolved]
  - Condition aggravated [Recovering/Resolving]
  - Psoriasis [Recovered/Resolved]
  - Therapeutic product effect decreased [Unknown]
  - Joint swelling [Recovered/Resolved]
  - Mobility decreased [Recovering/Resolving]
  - Erythema [Recovering/Resolving]
  - Joint swelling [Recovering/Resolving]

NARRATIVE: CASE EVENT DATE: 20240301
